FAERS Safety Report 8888270 (Version 1)
Quarter: 2012Q4

REPORT INFORMATION
  Report Type: 
  Country: FR (occurrence: FR)
  Receive Date: 20121106
  Receipt Date: 20121106
  Transmission Date: 20130627
  Serious: No
  Sender: FDA-Public Use
  Company Number: FR-009507513-1210FRA010329

PATIENT
  Age: 49 Year
  Sex: Female

DRUGS (1)
  1. SYCREST [Suspect]
     Indication: PRODUCT USED FOR UNKNOWN INDICATION
     Dosage: 10 mg, bid
     Route: 048
     Dates: end: 20121005

REACTIONS (1)
  - Urticaria [Unknown]
